FAERS Safety Report 8618921-2 (Version None)
Quarter: 2012Q3

REPORT INFORMATION
  Report Type: 
  Country: None (occurrence: None)
  Receive Date: 20120816
  Receipt Date: 20120816
  Transmission Date: 20120928
  Serious: Yes (Other)
  Sender: FDA-Public Use
  Company Number: None

PATIENT
  Sex: Female
  Weight: 65.7716 kg

DRUGS (1)
  1. ENBREL [Suspect]
     Indication: PSORIASIS
     Dosage: 1 PREFILLED AUTOINJECTOR WEEKLY
     Dates: start: 20090501, end: 20120713

REACTIONS (1)
  - BASAL CELL CARCINOMA [None]
